FAERS Safety Report 6229970-6 (Version None)
Quarter: 2009Q2

REPORT INFORMATION
  Report Type: 
  Country: None (occurrence: None)
  Receive Date: 20090615
  Receipt Date: 20090607
  Transmission Date: 20091009
  Serious: Yes (Hospitalization)
  Sender: FDA-Public Use
  Company Number: US-ASTRAZENECA-2009UW14348

PATIENT
  Age: 987 Month
  Sex: Female
  Weight: 83 kg

DRUGS (1)
  1. ARIMIDEX [Suspect]
     Indication: BREAST CANCER
     Route: 048

REACTIONS (3)
  - CEREBROVASCULAR DISORDER [None]
  - HYPERTENSION [None]
  - THROMBOSIS [None]
